FAERS Safety Report 9632442 (Version 1)
Quarter: 2013Q4

REPORT INFORMATION
  Report Type: Spontaneous
  Country: FR (occurrence: FR)
  Receive Date: 20131018
  Receipt Date: 20131018
  Transmission Date: 20140711
  Serious: Yes (Other)
  Sender: FDA-Public Use
  Company Number: PHHY2013FR117685

PATIENT
  Sex: Female

DRUGS (1)
  1. RASILEZ HCT [Suspect]

REACTIONS (1)
  - Cerebrovascular accident [Unknown]
